FAERS Safety Report 6369362-2 (Version None)
Quarter: 2009Q3

REPORT INFORMATION
  Report Type: 
  Country: None (occurrence: None)
  Receive Date: 20090917
  Receipt Date: 20090908
  Transmission Date: 20100115
  Serious: Yes (Other)
  Sender: FDA-Public Use
  Company Number: CHPA2009US18462

PATIENT
  Age: 44 Year
  Sex: Male
  Weight: 93 kg

DRUGS (3)
  1. GAS-X (NCH) (SIMETHICONE) DISPERSIBLE TABLET [Suspect]
     Indication: ABDOMINAL PAIN UPPER
     Dosage: 125 MG, ONCE/SINGLE, ORAL
     Route: 048
     Dates: start: 20090829, end: 20090829
  2. GAS-X (NCH) (SIMETHICONE) DISPERSIBLE TABLET [Suspect]
     Indication: FLATULENCE
     Dosage: 125 MG, ONCE/SINGLE, ORAL
     Route: 048
     Dates: start: 20090829, end: 20090829
  3. LISINOPRIL/HCTZ (HYDROCHLOROTHIAZIDE, LISINOPRIL) [Concomitant]

REACTIONS (8)
  - AGEUSIA [None]
  - APPLICATION SITE BURN [None]
  - BLOOD BLISTER [None]
  - EATING DISORDER [None]
  - GLOSSODYNIA [None]
  - TONGUE DISCOLOURATION [None]
  - TONGUE EXFOLIATION [None]
  - WEIGHT DECREASED [None]
